FAERS Safety Report 8111980-5 (Version None)
Quarter: 2012Q1

REPORT INFORMATION
  Report Type: 
  Country: None (occurrence: None)
  Receive Date: 20120203
  Receipt Date: 20120125
  Transmission Date: 20120608
  Serious: Yes (Other)
  Sender: FDA-Public Use
  Company Number: US-JNJFOC-20120111984

PATIENT
  Sex: Male

DRUGS (2)
  1. KETOROLAC TROMETHAMINE [Suspect]
     Indication: HIP ARTHROPLASTY
  2. XARELTO [Suspect]
     Indication: HIP ARTHROPLASTY
     Route: 048

REACTIONS (1)
  - SEROMA [None]
